FAERS Safety Report 4888797-8 (Version None)
Quarter: 2006Q1

REPORT INFORMATION
  Report Type: 
  Country: None (occurrence: None)
  Receive Date: 20060123
  Receipt Date: 20051005
  Transmission Date: 20060701
  Serious: Yes (Disabling, Other)
  Sender: FDA-Public Use
  Company Number: US-MERCK-0510USA05334

PATIENT
  Age: 41 Year
  Sex: Female
  Weight: 71 kg

DRUGS (5)
  1. VIOXX [Suspect]
     Indication: FIBROMYALGIA
     Route: 048
  2. ESTROGENS (UNSPECIFIED) [Concomitant]
     Route: 065
  3. LEVOXYL [Concomitant]
     Route: 065
  4. LEXAPRO [Concomitant]
     Route: 065
  5. XANAX [Concomitant]
     Route: 065

REACTIONS (5)
  - ARTHROPATHY [None]
  - CARDIAC DISORDER [None]
  - CHEST PAIN [None]
  - HYPERTENSION [None]
  - LOSS OF CONSCIOUSNESS [None]
